FAERS Safety Report 7154072-4 (Version None)
Quarter: 2010Q4

REPORT INFORMATION
  Report Type: 
  Country: None (occurrence: None)
  Receive Date: 20101213
  Receipt Date: 20101208
  Transmission Date: 20110411
  Serious: Yes (Other)
  Sender: FDA-Public Use
  Company Number: US-B.I. PHARMACEUTICALS,INC./RIDGEFIELD-2010-BP-13890BP

PATIENT
  Age: 69 Year
  Sex: Female

DRUGS (4)
  1. MICARDIS HCT [Suspect]
     Dates: start: 20030101
  2. ZOCOR [Concomitant]
  3. NORVASC [Concomitant]
  4. TRICOR [Concomitant]

REACTIONS (1)
  - CARDIAC DISORDER [None]
